FAERS Safety Report 7998420-1 (Version None)
Quarter: 2011Q4

REPORT INFORMATION
  Report Type: 
  Country: None (occurrence: None)
  Receive Date: 20111221
  Receipt Date: 20111012
  Transmission Date: 20120403
  Serious: No
  Sender: FDA-Public Use
  Company Number: US-GLAXOSMITHKLINE-A0948830A

PATIENT
  Age: 79 Year
  Sex: Female

DRUGS (12)
  1. CHLORTHALIDONE [Concomitant]
  2. RESTASIS [Concomitant]
  3. LOVAZA [Suspect]
     Indication: BLOOD TRIGLYCERIDES INCREASED
     Dosage: 1CAP TWICE PER DAY
     Route: 048
     Dates: start: 20110614
  4. EXFORGE [Concomitant]
  5. DORZOLAMIDE HYDROCHLORIDE [Concomitant]
  6. OMEPRAZOLE [Concomitant]
  7. SYNTHROID [Concomitant]
  8. TRAMADOL HCL [Concomitant]
  9. LUMIGAN [Concomitant]
  10. TIMOLOL MALEATE [Concomitant]
  11. METOPROLOL TARTRATE [Concomitant]
  12. ZOLPIDEM [Concomitant]

REACTIONS (3)
  - LOW DENSITY LIPOPROTEIN INCREASED [None]
  - BLOOD CHOLESTEROL INCREASED [None]
  - HIGH DENSITY LIPOPROTEIN INCREASED [None]
